FAERS Safety Report 23774143 (Version 3)
Quarter: 2025Q1

REPORT INFORMATION
  Report Type: Spontaneous
  Country: US (occurrence: US)
  Receive Date: 20240423
  Receipt Date: 20250320
  Transmission Date: 20250408
  Serious: No
  Sender: SANOFI AVENTIS
  Company Number: US-SA-2024SA115823

PATIENT
  Age: 38 Year
  Sex: Female

DRUGS (1)
  1. DUPIXENT [Suspect]
     Active Substance: DUPILUMAB
     Indication: Dermatitis
     Dosage: 300 MG, QOW
     Route: 058
     Dates: start: 201706

REACTIONS (10)
  - Rash erythematous [Unknown]
  - Skin burning sensation [Unknown]
  - Condition aggravated [Unknown]
  - Lip swelling [Not Recovered/Not Resolved]
  - Lip erythema [Unknown]
  - Lip dry [Unknown]
  - Pruritus [Unknown]
  - Lip pruritus [Not Recovered/Not Resolved]
  - Product use in unapproved indication [Unknown]
  - Drug ineffective for unapproved indication [Unknown]

NARRATIVE: CASE EVENT DATE: 20170601
